FAERS Safety Report 6199170-7 (Version None)
Quarter: 2009Q2

REPORT INFORMATION
  Report Type: 
  Country: None (occurrence: None)
  Receive Date: 20090522
  Receipt Date: 20090316
  Transmission Date: 20091009
  Serious: No
  Sender: FDA-Public Use
  Company Number: A0774430A

PATIENT
  Sex: Female

DRUGS (1)
  1. VERAMYST [Suspect]
     Indication: DRUG USE FOR UNKNOWN INDICATION

REACTIONS (4)
  - DYSPNOEA [None]
  - HEADACHE [None]
  - NASAL CONGESTION [None]
  - SLEEP DISORDER [None]
